FAERS Safety Report 6570566-4 (Version None)
Quarter: 2010Q1

REPORT INFORMATION
  Report Type: 
  Country: None (occurrence: None)
  Receive Date: 20100204
  Receipt Date: 20100128
  Transmission Date: 20100710
  Serious: Yes (Other)
  Sender: FDA-Public Use
  Company Number: GXKR2010IN01264

PATIENT
  Age: 51 Year
  Sex: Female

DRUGS (1)
  1. CYCLOSPORINE [Suspect]
     Indication: APLASTIC ANAEMIA
     Dosage: 100 MG, BID
     Route: 065

REACTIONS (9)
  - BONE DENSITY DECREASED [None]
  - DENTAL CARE [None]
  - GINGIVAL BLEEDING [None]
  - GINGIVAL DISCOLOURATION [None]
  - GINGIVAL RECESSION [None]
  - GINGIVAL SWELLING [None]
  - MASS EXCISION [None]
  - ORAL PAIN [None]
  - PERIODONTITIS [None]
